FAERS Safety Report 7114159-9 (Version None)
Quarter: 2010Q4

REPORT INFORMATION
  Report Type: 
  Country: None (occurrence: None)
  Receive Date: 20101119
  Receipt Date: 20101102
  Transmission Date: 20110411
  Serious: Yes (Hospitalization)
  Sender: FDA-Public Use
  Company Number: DE-AMGEN-DEUCT2010003166

PATIENT

DRUGS (4)
  1. ENBREL [Suspect]
     Route: 058
     Dates: start: 20091015, end: 20100101
  2. ENBREL [Suspect]
  3. LANTAREL [Suspect]
     Indication: PRODUCT USED FOR UNKNOWN INDICATION
     Dosage: 15MG, FREQUENCY UNKNOWN
     Dates: end: 20100101
  4. CLEXANE [Concomitant]
     Dosage: UNKNOWN
     Route: 058

REACTIONS (2)
  - GASTROINTESTINAL NEOPLASM [None]
  - INFECTED NEOPLASM [None]
